FAERS Safety Report 5903145-X (Version None)
Quarter: 2008Q3

REPORT INFORMATION
  Report Type: 
  Country: None (occurrence: None)
  Receive Date: 20080930
  Receipt Date: 20080924
  Transmission Date: 20090109
  Serious: Yes (Other)
  Sender: FDA-Public Use
  Company Number: CA-ELI_LILLY_AND_COMPANY-CA200809006078

PATIENT
  Age: 14 Year
  Sex: Male

DRUGS (4)
  1. HUMALOG [Suspect]
     Dosage: 9 U, DAILY (1/D)
  2. HUMALOG [Suspect]
     Dosage: UNK, AS NEEDED
  3. HUMULIN N [Suspect]
     Dosage: 26 U, 2/D
  4. GLUCAGON [Suspect]
     Indication: HYPOGLYCAEMIA

REACTIONS (3)
  - BLOOD GLUCOSE DECREASED [None]
  - DRUG INEFFECTIVE [None]
  - HYPOGLYCAEMIC UNCONSCIOUSNESS [None]
